FAERS Safety Report 19561857 (Version 1)
Quarter: 2021Q3

REPORT INFORMATION
  Report Type: Spontaneous
  Country: US (occurrence: US)
  Receive Date: 20210716
  Receipt Date: 20210716
  Transmission Date: 20211014
  Serious: Yes (Life-Threatening, Disabling, Other)
  Sender: FDA-Public Use
  Company Number: None

PATIENT
  Age: 62 Year
  Sex: Female
  Weight: 53.1 kg

DRUGS (13)
  1. NEUTROGENA BEACH DEFENSE WATER PLUS SUN BARRIER SUNSCREEN BROAD SPECTRUM SPF70 [Suspect]
     Active Substance: AVOBENZONE\HOMOSALATE\OCTISALATE\OCTOCRYLENE\OXYBENZONE
     Indication: PROPHYLAXIS AGAINST SOLAR RADIATION
     Dosage: ?          OTHER STRENGTH:SPRAY;?
     Route: 061
     Dates: end: 20201201
  2. ALENDRONATE 35MG TEVA PHARMACEUTICALS MERCK + CO [Concomitant]
     Active Substance: ALENDRONATE SODIUM
  3. FISH OIL [Concomitant]
     Active Substance: FISH OIL
  4. DOTTI ESTROGEN PATCH [Concomitant]
  5. RESVERATROL [Concomitant]
     Active Substance: DIETARY SUPPLEMENT\RESVERATROL
  6. VITAMIN C [Concomitant]
     Active Substance: ASCORBIC ACID
  7. CALCIUM [Concomitant]
     Active Substance: CALCIUM
  8. PROBIOTIC [Concomitant]
     Active Substance: PROBIOTICS NOS
  9. VITAMIN A [Concomitant]
     Active Substance: VITAMIN A
  10. PREDNIZONE 5MG [Concomitant]
  11. LEVOTHYROXINE 125 MCG [Concomitant]
     Active Substance: LEVOTHYROXINE SODIUM
  12. RINVOQ [Concomitant]
     Active Substance: UPADACITINIB
  13. BIOTIN [Concomitant]
     Active Substance: BIOTIN

REACTIONS (2)
  - Melanocytic naevus [None]
  - Malignant melanoma in situ [None]

NARRATIVE: CASE EVENT DATE: 20210608
